FAERS Safety Report 9376868 (Version 1)
Quarter: 2013Q2

REPORT INFORMATION
  Report Type: Spontaneous
  Country: US (occurrence: None)
  Receive Date: 20130628
  Receipt Date: 20130628
  Transmission Date: 20140414
  Serious: Yes (Hospitalization)
  Sender: FDA-Public Use
  Company Number: None

PATIENT
  Age: 86 None
  Sex: Male
  Weight: 86.4 kg

DRUGS (1)
  1. AZTREONAM [Suspect]
     Indication: URINARY TRACT INFECTION
     Route: 042
     Dates: start: 20130624, end: 20130627

REACTIONS (1)
  - Rash [None]
